FAERS Safety Report 10350127 (Version 3)
Quarter: 2014Q3

REPORT INFORMATION
  Report Type: Spontaneous
  Country: US (occurrence: None)
  Receive Date: 20140728
  Receipt Date: 20140925
  Transmission Date: 20150326
  Serious: Yes (Hospitalization)
  Sender: FDA-Public Use
  Company Number: VAL_03220_2014

PATIENT
  Age: 78 Year
  Sex: Male

DRUGS (7)
  1. TRAZODONE (UNKNOWN) [Concomitant]
  2. CARBIDOPA/LEVODOPA (UNKNOWN) [Concomitant]
     Indication: PRODUCT USED FOR UNKNOWN INDICATION
     Route: 048
  3. METOPROLOL [Suspect]
     Active Substance: METOPROLOL
     Indication: PRODUCT USED FOR UNKNOWN INDICATION
     Route: 048
  4. WARFARIN (UNKNOWN) [Concomitant]
     Active Substance: WARFARIN
  5. RIVASTIGMINE [Suspect]
     Active Substance: RIVASTIGMINE
     Indication: DEMENTIA WITH LEWY BODIES
     Dosage: 9.5 MG, [DAILY, PATCH] TRANSDERMAL),?
     Route: 061
  6. DONEPEZIL [Suspect]
     Active Substance: DONEPEZIL
     Indication: DEMENTIA WITH LEWY BODIES
     Dosage: 10 MG, PER DAY ORAL
     Route: 048
  7. RIVASTIGMINE [Suspect]
     Active Substance: RIVASTIGMINE
     Indication: OFF LABEL USE
     Dosage: 9.5 MG, [DAILY, PATCH] TRANSDERMAL),?
     Route: 061

REACTIONS (13)
  - Encephalopathy [None]
  - Lethargy [None]
  - Incoherent [None]
  - Vomiting [None]
  - Confusional state [None]
  - Diarrhoea [None]
  - Drug prescribing error [None]
  - Miosis [None]
  - Toxicity to various agents [None]
  - Nausea [None]
  - Slow response to stimuli [None]
  - Sinus bradycardia [None]
  - Blood cholinesterase decreased [None]
